FAERS Safety Report 9774306 (Version 2)
Quarter: 2014Q1

REPORT INFORMATION
  Report Type: Report from Study
  Country: FR (occurrence: FR)
  Receive Date: 20131220
  Receipt Date: 20140201
  Transmission Date: 20141002
  Serious: Yes (Hospitalization, Other)
  Sender: FDA-Public Use
  Company Number: FR-ROCHE-1318423

PATIENT
  Sex: Female

DRUGS (61)
  1. RITUXIMAB [Suspect]
     Indication: RHEUMATOID ARTHRITIS
     Dosage: D 1
     Route: 041
     Dates: start: 20070510
  2. RITUXIMAB [Suspect]
     Dosage: D 15
     Route: 041
     Dates: start: 20070524
  3. RITUXIMAB [Suspect]
     Dosage: D 1
     Route: 041
     Dates: start: 20071205
  4. RITUXIMAB [Suspect]
     Dosage: D 15
     Route: 041
     Dates: start: 20071219
  5. RITUXIMAB [Suspect]
     Dosage: D 1
     Route: 041
     Dates: start: 20090323
  6. RITUXIMAB [Suspect]
     Dosage: D 15
     Route: 041
     Dates: start: 20090406
  7. RITUXIMAB [Suspect]
     Dosage: D 1
     Route: 041
     Dates: start: 20100615
  8. RITUXIMAB [Suspect]
     Dosage: D 15
     Route: 041
     Dates: start: 20100629
  9. RITUXIMAB [Suspect]
     Dosage: D 1
     Route: 041
     Dates: start: 20110720
  10. RITUXIMAB [Suspect]
     Dosage: D 15
     Route: 041
     Dates: start: 20110803
  11. RITUXIMAB [Suspect]
     Dosage: D 1
     Route: 041
     Dates: start: 20120119
  12. RITUXIMAB [Suspect]
     Dosage: D 15
     Route: 041
     Dates: start: 20120202
  13. RITUXIMAB [Suspect]
     Route: 041
     Dates: start: 20130320
  14. METHOTREXATE [Concomitant]
     Route: 065
     Dates: start: 20070510
  15. METHOTREXATE [Concomitant]
     Route: 065
     Dates: start: 20070524
  16. CORTANCYL [Concomitant]
     Route: 065
     Dates: start: 20070510
  17. CORTANCYL [Concomitant]
     Route: 065
     Dates: start: 20070524
  18. CORTANCYL [Concomitant]
     Route: 065
     Dates: start: 20071205
  19. CORTANCYL [Concomitant]
     Route: 065
     Dates: start: 20071219
  20. CORTANCYL [Concomitant]
     Route: 065
     Dates: start: 20090323
  21. CORTANCYL [Concomitant]
     Route: 065
     Dates: start: 20090406
  22. METHYLPREDNISOLONE [Concomitant]
     Route: 065
     Dates: start: 20070510
  23. METHYLPREDNISOLONE [Concomitant]
     Route: 065
     Dates: start: 20070524
  24. METHYLPREDNISOLONE [Concomitant]
     Route: 065
     Dates: start: 20071205
  25. METHYLPREDNISOLONE [Concomitant]
     Route: 065
     Dates: start: 20071219
  26. METHYLPREDNISOLONE [Concomitant]
     Route: 065
     Dates: start: 20090323
  27. METHYLPREDNISOLONE [Concomitant]
     Route: 065
     Dates: start: 20090406
  28. METHYLPREDNISOLONE [Concomitant]
     Route: 065
     Dates: start: 20100615
  29. METHYLPREDNISOLONE [Concomitant]
     Route: 065
     Dates: start: 20110720
  30. METHYLPREDNISOLONE [Concomitant]
     Route: 065
     Dates: start: 20110803
  31. METHYLPREDNISOLONE [Concomitant]
     Route: 065
     Dates: start: 20120119
  32. METHYLPREDNISOLONE [Concomitant]
     Route: 065
     Dates: start: 20120202
  33. METHYLPREDNISOLONE [Concomitant]
     Route: 065
     Dates: start: 20130320
  34. PARACETAMOL [Concomitant]
     Route: 065
     Dates: start: 20070510
  35. PARACETAMOL [Concomitant]
     Route: 065
     Dates: start: 20070524
  36. PARACETAMOL [Concomitant]
     Route: 065
     Dates: start: 20071205
  37. PARACETAMOL [Concomitant]
     Route: 065
     Dates: start: 20071219
  38. PARACETAMOL [Concomitant]
     Route: 065
     Dates: start: 20090323
  39. PARACETAMOL [Concomitant]
     Route: 065
     Dates: start: 20090406
  40. PARACETAMOL [Concomitant]
     Route: 065
     Dates: start: 20100615
  41. PARACETAMOL [Concomitant]
     Route: 065
     Dates: start: 20110720
  42. PARACETAMOL [Concomitant]
     Route: 065
     Dates: start: 20110803
  43. PARACETAMOL [Concomitant]
     Route: 065
     Dates: start: 20120119
  44. PARACETAMOL [Concomitant]
     Route: 065
     Dates: start: 20120202
  45. PARACETAMOL [Concomitant]
     Route: 065
     Dates: start: 20130320
  46. LEFLUNOMIDE [Concomitant]
     Route: 065
     Dates: start: 20071205
  47. LEFLUNOMIDE [Concomitant]
     Route: 065
     Dates: start: 20071219
  48. LEFLUNOMIDE [Concomitant]
     Route: 065
     Dates: start: 20090323
  49. LEFLUNOMIDE [Concomitant]
     Route: 065
     Dates: start: 20090406
  50. LEFLUNOMIDE [Concomitant]
     Route: 065
     Dates: start: 20110720
  51. LEFLUNOMIDE [Concomitant]
     Route: 065
     Dates: start: 20110803
  52. TAHOR [Concomitant]
     Dosage: 10MG/L
     Route: 065
     Dates: start: 20071205
  53. TAHOR [Concomitant]
     Dosage: 10MG/L
     Route: 065
     Dates: start: 20071219
  54. CRESTOR [Concomitant]
     Dosage: 10MG/L
     Route: 065
     Dates: start: 20100615
  55. CRESTOR [Concomitant]
     Dosage: 10MG/L
     Route: 065
     Dates: start: 20100629
  56. CRESTOR [Concomitant]
     Dosage: 10MG/L
     Route: 065
     Dates: start: 20110720
  57. CRESTOR [Concomitant]
     Dosage: 10MG/L
     Route: 065
     Dates: start: 20110803
  58. CRESTOR [Concomitant]
     Dosage: 10MG/L
     Route: 065
     Dates: start: 20120119
  59. CRESTOR [Concomitant]
     Dosage: 10MG/L
     Route: 065
     Dates: start: 20120202
  60. INSULIN [Concomitant]
  61. ARAVA [Concomitant]

REACTIONS (6)
  - Infusion related reaction [Recovered/Resolved]
  - Rheumatoid arthritis [Recovered/Resolved]
  - Infected cyst [Recovered/Resolved]
  - Diabetic neuropathy [Recovered/Resolved]
  - Iron deficiency anaemia [Not Recovered/Not Resolved]
  - Oropharyngeal pain [Recovered/Resolved]
